FAERS Safety Report 22272844 (Version 1)
Quarter: 2023Q2

REPORT INFORMATION
  Report Type: Spontaneous
  Country: JP (occurrence: JP)
  Receive Date: 20230502
  Receipt Date: 20230502
  Transmission Date: 20230721
  Serious: Yes (Hospitalization)
  Sender: FDA-Public Use
  Company Number: JP-SA-2023SA134065

PATIENT
  Age: 63 Year
  Sex: Male

DRUGS (3)
  1. OXALIPLATIN [Suspect]
     Active Substance: OXALIPLATIN
     Indication: Gastric cancer
     Dosage: UNK, SOLUTION FOR INJECTION
     Route: 042
  2. HERBALS [Suspect]
     Active Substance: HERBALS
     Indication: Gastric cancer
     Dosage: 7.5 G, QD
     Route: 048
  3. TS-1 [Concomitant]
     Active Substance: GIMERACIL\OTERACIL\TEGAFUR
     Indication: Gastric cancer
     Dosage: UNK

REACTIONS (1)
  - Pseudoaldosteronism [Recovering/Resolving]
